FAERS Safety Report 24026865 (Version 1)
Quarter: 2024Q2

REPORT INFORMATION
  Report Type: Report from Study
  Country: CN (occurrence: CN)
  Receive Date: 20240628
  Receipt Date: 20240628
  Transmission Date: 20240716
  Serious: No
  Sender: FDA-Public Use
  Company Number: CN-ROCHE-3563200

PATIENT
  Age: 65 Year
  Sex: Female
  Weight: 57.0 kg

DRUGS (10)
  1. ALECTINIB [Suspect]
     Active Substance: ALECTINIB
     Indication: Lung cancer metastatic
     Route: 048
     Dates: start: 20211202
  2. ALECTINIB [Suspect]
     Active Substance: ALECTINIB
     Dosage: PRE STUDY DOSING
     Route: 065
     Dates: start: 20210915
  3. UBIDECARENONE [Concomitant]
     Active Substance: UBIDECARENONE
     Route: 048
     Dates: start: 20211004
  4. PHOSPHOLIPID [Concomitant]
     Active Substance: PHOSPHOLIPID
     Dosage: 2 CAPSULE
     Route: 048
     Dates: start: 20220614
  5. GLYCYRRHIZA [Concomitant]
     Active Substance: LICORICE
     Route: 048
     Dates: start: 20221024
  6. LOQUAT RESPIRATORY [Concomitant]
     Route: 048
     Dates: start: 20230826
  7. DISODIUM CANTHARIDINATE [Concomitant]
     Route: 042
     Dates: start: 20231107, end: 20231107
  8. MAGNESIUM ISOGLYCYRRHIZINATE [Concomitant]
     Active Substance: MAGNESIUM ISOGLYCYRRHIZINATE
     Route: 042
     Dates: start: 20231107, end: 20231107
  9. ACETYLCYSTEINE [Concomitant]
     Active Substance: ACETYLCYSTEINE
     Route: 048
     Dates: start: 20231113, end: 20231124
  10. ZOLEDRONIC [Concomitant]
     Active Substance: ZOLEDRONIC ACID
     Route: 042
     Dates: start: 20231107, end: 20231107

REACTIONS (1)
  - Upper respiratory tract infection [Recovered/Resolved]

NARRATIVE: CASE EVENT DATE: 20231113
